FAERS Safety Report 9913075 (Version 1)
Quarter: 2014Q1

REPORT INFORMATION
  Report Type: Spontaneous
  Country: US (occurrence: US)
  Receive Date: 20140220
  Receipt Date: 20140220
  Transmission Date: 20141002
  Serious: Yes (Disabling)
  Sender: FDA-Public Use
  Company Number: US-GE HEALTHCARE MEDICAL DIAGNOSTICS-OSCN-PR-1008S-0213

PATIENT
  Age: 67 Year
  Sex: Male

DRUGS (5)
  1. OMNISCAN [Suspect]
     Indication: CAROTID ARTERY OCCLUSION
     Dates: start: 20021224, end: 20021224
  2. OMNISCAN [Suspect]
     Dates: start: 20050829, end: 20050829
  3. MAGNEVIST [Suspect]
     Indication: RENAL FAILURE
     Dates: start: 20030326, end: 20060326
  4. MAGNEVIST [Suspect]
     Indication: LABILE HYPERTENSION
  5. OPTIMARK [Suspect]
     Indication: CAROTID ARTERY STENOSIS
     Route: 042
     Dates: start: 20051019, end: 20051019

REACTIONS (1)
  - Nephrogenic systemic fibrosis [Not Recovered/Not Resolved]
